FAERS Safety Report 5151230-5 (Version None)
Quarter: 2006Q4

REPORT INFORMATION
  Report Type: 
  Country: None (occurrence: None)
  Receive Date: 20061113
  Receipt Date: 20061113
  Transmission Date: 20070319
  Serious: Yes (Hospitalization)
  Sender: FDA-Public Use
  Company Number: None

PATIENT
  Age: 56 Year
  Sex: Male
  Weight: 106.5953 kg

DRUGS (10)
  1. AVANDIA [Suspect]
     Indication: DIABETES MELLITUS NON-INSULIN-DEPENDENT
     Dosage: 4 MG TWICE DAILY PO
     Route: 048
     Dates: start: 20051201, end: 20061006
  2. ASPIRIN [Concomitant]
  3. CLONIDINE [Concomitant]
  4. COREG [Concomitant]
  5. DOXAZOSIN MESYLATE [Concomitant]
  6. FUROSEMIDE [Concomitant]
  7. GLYBURIDE [Concomitant]
  8. LISINOPRIL [Concomitant]
  9. METOLAZONE [Concomitant]
  10. VERAPAMIL [Concomitant]

REACTIONS (5)
  - BLOOD PRESSURE INCREASED [None]
  - CARDIAC FAILURE [None]
  - FLUID RETENTION [None]
  - OEDEMA [None]
  - WEIGHT INCREASED [None]
